FAERS Safety Report 6347817-4 (Version None)
Quarter: 2009Q3

REPORT INFORMATION
  Report Type: 
  Country: None (occurrence: None)
  Receive Date: 20090910
  Receipt Date: 20090902
  Transmission Date: 20100115
  Serious: Yes (Hospitalization)
  Sender: FDA-Public Use
  Company Number: B0587898A

PATIENT
  Age: 55 Year
  Sex: Male

DRUGS (9)
  1. RANITIDINE [Suspect]
     Dosage: 600MG PER DAY
     Route: 048
     Dates: start: 20090716, end: 20090722
  2. FRAGMIN [Concomitant]
  3. LOPERAMIDE HYDROCHLORIDE [Concomitant]
  4. SIMVASTATIN [Concomitant]
  5. ZOPICLONE [Concomitant]
  6. BISOPROLOL FUMARATE [Concomitant]
  7. NICORANDIL [Concomitant]
  8. CLOPIDOGREL [Concomitant]
  9. QUININE SULPHATE [Concomitant]

REACTIONS (1)
  - RENAL FAILURE ACUTE [None]
